FAERS Safety Report 23970139 (Version 2)
Quarter: 2024Q3

REPORT INFORMATION
  Report Type: Spontaneous
  Country: JP (occurrence: JP)
  Receive Date: 20240613
  Receipt Date: 20240925
  Transmission Date: 20241016
  Serious: Yes (Other)
  Sender: AMGEN
  Company Number: JP-DSJP-DSJ-2024-115754

PATIENT
  Age: 85 Year
  Sex: Male

DRUGS (3)
  1. DENOSUMAB [Suspect]
     Active Substance: DENOSUMAB
     Indication: Product used for unknown indication
     Dosage: UNK UNK, Q6MO
     Route: 065
     Dates: start: 20240401
  2. CALCIUM CARBONATE\CHOLECALCIFEROL\MAGNESIUM CARBONATE [Suspect]
     Active Substance: CALCIUM CARBONATE\CHOLECALCIFEROL\MAGNESIUM CARBONATE
     Indication: Product used for unknown indication
     Dosage: UNK
     Route: 048
  3. CALCIUM CARBONATE\CHOLECALCIFEROL\MAGNESIUM CARBONATE [Suspect]
     Active Substance: CALCIUM CARBONATE\CHOLECALCIFEROL\MAGNESIUM CARBONATE
     Dosage: UNK (ONE TABLET OR ONE AND A HALF TABLETS EACH)
     Route: 048

REACTIONS (14)
  - Spinal compression fracture [Unknown]
  - Cataract [Unknown]
  - Nausea [Not Recovered/Not Resolved]
  - Abdominal distension [Not Recovered/Not Resolved]
  - Diarrhoea [Unknown]
  - Periodontitis [Unknown]
  - Physical deconditioning [Unknown]
  - Nausea [Unknown]
  - Constipation [Unknown]
  - Blood calcium decreased [Recovered/Resolved]
  - Gastrointestinal disorder [Unknown]
  - Dizziness [Unknown]
  - Spinal pain [Unknown]
  - Ear disorder [Unknown]

NARRATIVE: CASE EVENT DATE: 20240101
